FAERS Safety Report 24661067 (Version 1)
Quarter: 2024Q4

REPORT INFORMATION
  Report Type: Spontaneous
  Country: US (occurrence: US)
  Receive Date: 20241125
  Receipt Date: 20241125
  Transmission Date: 20250115
  Serious: No
  Sender: AVADEL CNS PHARMACEUTICALS, LLC
  Company Number: US-AVADEL CNS PHARMACEUTICALS, LLC-2024AVA01713

PATIENT
  Sex: Female

DRUGS (2)
  1. LUMRYZ [Suspect]
     Active Substance: SODIUM OXYBATE
     Indication: Narcolepsy
     Dosage: 9 G
     Dates: start: 202401, end: 202408
  2. FOCALIN [Concomitant]
     Active Substance: DEXMETHYLPHENIDATE HYDROCHLORIDE

REACTIONS (8)
  - Middle insomnia [Recovered/Resolved]
  - Feeling hot [Recovered/Resolved]
  - Hyperhidrosis [Recovered/Resolved]
  - Confusional state [Recovered/Resolved]
  - Enuresis [Recovered/Resolved]
  - Nausea [Recovered/Resolved]
  - Drug ineffective [Recovered/Resolved]
  - Therapeutic product effect prolonged [Recovered/Resolved]

NARRATIVE: CASE EVENT DATE: 20240101
